APPROVED DRUG PRODUCT: SULSTER
Active Ingredient: PREDNISOLONE SODIUM PHOSPHATE; SULFACETAMIDE SODIUM
Strength: EQ 0.23% PHOSPHATE;10%
Dosage Form/Route: SOLUTION/DROPS;OPHTHALMIC
Application: A074511 | Product #001
Applicant: EPIC PHARMA LLC
Approved: Jul 30, 1996 | RLD: No | RS: No | Type: DISCN